FAERS Safety Report 18941858 (Version 2)
Quarter: 2021Q1

REPORT INFORMATION
  Report Type: Spontaneous
  Country: TR (occurrence: TR)
  Receive Date: 20210225
  Receipt Date: 20210316
  Transmission Date: 20210420
  Serious: No
  Sender: FDA-Public Use
  Company Number: TR-INCYTE CORPORATION-2021IN001457

PATIENT

DRUGS (1)
  1. JAKAVI [Suspect]
     Active Substance: RUXOLITINIB
     Dosage: 2 DF, BID (10 MG QD)
     Route: 065

REACTIONS (5)
  - Product supply issue [Unknown]
  - General physical health deterioration [Unknown]
  - Pain [Unknown]
  - Dyspnoea [Unknown]
  - Lung disorder [Unknown]
